FAERS Safety Report 9208358 (Version 2)
Quarter: 2013Q2

REPORT INFORMATION
  Report Type: Spontaneous
  Country: IT (occurrence: IT)
  Receive Date: 20130404
  Receipt Date: 20130426
  Transmission Date: 20140414
  Serious: Yes (Hospitalization)
  Sender: FDA-Public Use
  Company Number: IT-GE HEALTHCARE MEDICAL DIAGNOSTICS-VISP-PR-1303S-0501

PATIENT
  Age: 71 Year
  Sex: Female

DRUGS (8)
  1. VISIPAQUE [Suspect]
     Indication: PRODUCT USED FOR UNKNOWN INDICATION
     Route: 013
     Dates: start: 20130320, end: 20130320
  2. VISIPAQUE [Suspect]
     Indication: DIAGNOSTIC PROCEDURE
  3. FUROSEMIDE [Concomitant]
  4. GABAPENTIN [Concomitant]
  5. ALLOPURINOL [Concomitant]
  6. OMEPRAZOLE [Concomitant]
  7. COUMADINE [Concomitant]
     Dates: start: 20130316
  8. TACHIDOL [Concomitant]
     Dates: start: 20130320

REACTIONS (1)
  - Acute generalised exanthematous pustulosis [Recovered/Resolved]
